FAERS Safety Report 16832260 (Version 1)
Quarter: 2019Q3

REPORT INFORMATION
  Report Type: Spontaneous
  Country: US (occurrence: US)
  Receive Date: 20190730
  Receipt Date: 20190730
  Transmission Date: 20191005
  Serious: No
  Sender: FDA-Public Use
  Company Number: None

PATIENT
  Age: 51 Year
  Sex: Male

DRUGS (1)
  1. SUTENT [Suspect]
     Active Substance: SUNITINIB MALATE
     Dates: start: 20190705

REACTIONS (5)
  - Nausea [None]
  - Diarrhoea [None]
  - Palmar-plantar erythrodysaesthesia syndrome [None]
  - Stomatitis [None]
  - Dyspepsia [None]

NARRATIVE: CASE EVENT DATE: 20190730
